FAERS Safety Report 12693282 (Version 1)
Quarter: 2016Q3

REPORT INFORMATION
  Report Type: Spontaneous
  Country: US (occurrence: None)
  Receive Date: 20160826
  Receipt Date: 20160826
  Transmission Date: 20161109
  Serious: No
  Sender: FDA-Public Use
  Company Number: None

PATIENT

DRUGS (2)
  1. GONIOVISC OPHTHALMIC LUBRICANT [Suspect]
     Active Substance: HYPROMELLOSES
     Indication: RETINAL OPERATION
     Route: 047
     Dates: start: 20160401, end: 20160825
  2. GONIOVISC OPHTHALMIC LUBRICANT [Suspect]
     Active Substance: HYPROMELLOSES
     Indication: RETINAL OPERATION
     Route: 047
     Dates: start: 20160401, end: 20160825

REACTIONS (1)
  - Corneal abrasion [None]
